FAERS Safety Report 10448522 (Version 2)
Quarter: 2014Q3

REPORT INFORMATION
  Report Type: Report from Study
  Country: US (occurrence: NO)
  Receive Date: 20140911
  Receipt Date: 20140924
  Transmission Date: 20150326
  Serious: No
  Sender: FDA-Public Use
  Company Number: NO-FRI-1000070519

PATIENT
  Age: 69 Year
  Sex: Female

DRUGS (4)
  1. ROFLUMILAST [Suspect]
     Active Substance: ROFLUMILAST
     Indication: CHRONIC OBSTRUCTIVE PULMONARY DISEASE
     Dosage: 500 MCG
     Dates: start: 20131127, end: 20140122
  2. ULTIBRO [Concomitant]
     Dates: start: 20140429
  3. GLYCOPYRRONIUM BROMIDE [Concomitant]
     Active Substance: GLYCOPYRRONIUM
     Dates: start: 20131204, end: 20140429
  4. ONBREZ [Concomitant]
     Active Substance: INDACATEROL
     Dates: start: 20100603

REACTIONS (3)
  - Tremor [Unknown]
  - Palpitations [Unknown]
  - Weight decreased [Unknown]
